FAERS Safety Report 6184951-6 (Version None)
Quarter: 2009Q2

REPORT INFORMATION
  Report Type: 
  Country: None (occurrence: None)
  Receive Date: 20090511
  Receipt Date: 20090203
  Transmission Date: 20091009
  Serious: No
  Sender: FDA-Public Use
  Company Number: A0682747A

PATIENT
  Age: 71 Year
  Sex: Female

DRUGS (10)
  1. COREG CR [Suspect]
     Dosage: 40MG PER DAY
     Route: 048
     Dates: start: 20070401
  2. COREG [Suspect]
     Indication: DRUG USE FOR UNKNOWN INDICATION
  3. LANOXIN [Concomitant]
  4. LASIX [Concomitant]
  5. MOTRIN [Concomitant]
  6. VALIUM [Concomitant]
  7. VITAMINS [Concomitant]
  8. LACTAID [Concomitant]
  9. CALCIUM [Concomitant]
  10. ARTHRITIS MEDICATION [Concomitant]

REACTIONS (9)
  - ARTHRITIS [None]
  - CHILLS [None]
  - HOT FLUSH [None]
  - LIP SWELLING [None]
  - PAIN [None]
  - PHOTOSENSITIVITY REACTION [None]
  - STOMATITIS [None]
  - SUNBURN [None]
  - VISION BLURRED [None]
